FAERS Safety Report 15103484 (Version 2)
Quarter: 2018Q3

REPORT INFORMATION
  Report Type: Report from Study
  Country: DE (occurrence: DE)
  Receive Date: 20180703
  Receipt Date: 20180709
  Transmission Date: 20181010
  Serious: Yes (Congenital Anomaly, Other)
  Sender: FDA-Public Use
  Company Number: DE-PFIZER INC-2018262781

PATIENT

DRUGS (10)
  1. METOPROLOL. [Suspect]
     Active Substance: METOPROLOL
     Dosage: UNK(1?3 TRIMESTER)
     Route: 064
  2. ETHINYLESTRADIOL [Suspect]
     Active Substance: ETHINYL ESTRADIOL
     Dosage: UNK(1ST TRIMESTER)
     Route: 064
  3. SUMATRIPTAN SUCCINATE. [Suspect]
     Active Substance: SUMATRIPTAN SUCCINATE
     Indication: MIGRAINE
     Dosage: UNK (0?5) WEEK OF EXPOSURE
     Route: 064
  4. LEVONORGESTREL. [Suspect]
     Active Substance: LEVONORGESTREL
     Dosage: UNK( 1ST TRIMESTER)
     Route: 064
  5. AMITRIPTYLINE [Suspect]
     Active Substance: AMITRIPTYLINE
     Dosage: UNK(1ST TRIMESTER)
     Route: 064
  6. METOCLOPRAMIDE. [Suspect]
     Active Substance: METOCLOPRAMIDE
     Dosage: UNK(1?3 TRIMESTER)
     Route: 064
  7. MORPHINE HYDROCHLORIDE [Suspect]
     Active Substance: MORPHINE HYDROCHLORIDE
     Dosage: UNK(1?3 TRIMESTER)
     Route: 064
  8. DICLOFENAC [Suspect]
     Active Substance: DICLOFENAC
     Dosage: UNK(1ST TRIMESTER)
     Route: 064
  9. PANTOPRAZOLE [Suspect]
     Active Substance: PANTOPRAZOLE
     Dosage: UNK(1ST TRIMESTER)
     Route: 064
  10. METAMIZOLE [Suspect]
     Active Substance: METAMIZOLE
     Dosage: UNK(1?3 TRIMESTER)
     Route: 064

REACTIONS (3)
  - Maternal exposure during pregnancy [Unknown]
  - Atrial septal defect [Unknown]
  - Pulmonary artery stenosis [Unknown]
